FAERS Safety Report 6527082-5 (Version None)
Quarter: 2010Q1

REPORT INFORMATION
  Report Type: 
  Country: None (occurrence: None)
  Receive Date: 20100105
  Receipt Date: 20091119
  Transmission Date: 20100710
  Serious: Yes (Other)
  Sender: FDA-Public Use
  Company Number: JP-JNJCH-2010000011

PATIENT
  Age: 4 Year
  Sex: Male

DRUGS (1)
  1. ZYRTEC [Suspect]
     Indication: RHINITIS ALLERGIC
     Dosage: TEXT:5 MG QD
     Route: 048
     Dates: start: 20090522, end: 20090524

REACTIONS (1)
  - EPILEPSY [None]
